FAERS Safety Report 18784597 (Version 6)
Quarter: 2022Q3

REPORT INFORMATION
  Report Type: Spontaneous
  Country: US (occurrence: US)
  Receive Date: 20210125
  Receipt Date: 20220818
  Transmission Date: 20221027
  Serious: No
  Sender: FDA-Public Use
  Company Number: US-PFIZER INC-2021061507

PATIENT
  Age: 66 Year
  Sex: Female

DRUGS (5)
  1. IBRANCE [Suspect]
     Active Substance: PALBOCICLIB
     Indication: Breast cancer female
     Dosage: 100 MG
     Dates: start: 20210115
  2. IBRANCE [Suspect]
     Active Substance: PALBOCICLIB
     Dosage: 100 MG
     Dates: start: 20210117
  3. IBRANCE [Suspect]
     Active Substance: PALBOCICLIB
     Dosage: 100 MG
     Dates: start: 20210118
  4. IBRANCE [Suspect]
     Active Substance: PALBOCICLIB
     Dosage: 100 MG
     Dates: start: 20210504
  5. IBRANCE [Suspect]
     Active Substance: PALBOCICLIB
     Dosage: 75 MG, CYCLIC (TAKE ONE TAB PO QD, 2 WEEKS ON AND 2 WEEKS OFF)
     Route: 048

REACTIONS (16)
  - Off label use [Unknown]
  - Nausea [Unknown]
  - Memory impairment [Unknown]
  - Muscular weakness [Unknown]
  - Eating disorder [Unknown]
  - Ageusia [Recovered/Resolved]
  - Dysgeusia [Unknown]
  - Nocturia [Unknown]
  - Dyspnoea [Unknown]
  - Alopecia [Not Recovered/Not Resolved]
  - Palpitations [Unknown]
  - Haemoglobin decreased [Unknown]
  - Fatigue [Recovering/Resolving]
  - Weight decreased [Unknown]
  - Dizziness [Unknown]
  - Alopecia [Unknown]

NARRATIVE: CASE EVENT DATE: 20220101
